FAERS Safety Report 12679585 (Version 1)
Quarter: 2016Q3

REPORT INFORMATION
  Report Type: Spontaneous
  Country: US (occurrence: None)
  Receive Date: 20160823
  Receipt Date: 20160823
  Transmission Date: 20161109
  Serious: Yes (Life-Threatening, Other)
  Sender: FDA-Public Use
  Company Number: None

PATIENT
  Age: 67 Year
  Sex: Female
  Weight: 58.06 kg

DRUGS (6)
  1. GLUCOSOMATE [Concomitant]
  2. PROLIA [Concomitant]
     Active Substance: DENOSUMAB
  3. GADOBUTROL [Suspect]
     Active Substance: GADOBUTROL
     Indication: NUCLEAR MAGNETIC RESONANCE IMAGING
     Route: 042
     Dates: start: 20160801, end: 20160801
  4. CALCIUM [Concomitant]
     Active Substance: CALCIUM
  5. VAGIFEM [Concomitant]
     Active Substance: ESTRADIOL
  6. MULTIVITAMIN [Concomitant]
     Active Substance: VITAMINS

REACTIONS (13)
  - Paraesthesia [None]
  - Chills [None]
  - Headache [None]
  - Anaphylactic reaction [None]
  - Fatigue [None]
  - Contrast media reaction [None]
  - Hypersensitivity [None]
  - Blood pressure increased [None]
  - Dizziness [None]
  - Nausea [None]
  - Tremor [None]
  - Feeling hot [None]
  - Asthenia [None]

NARRATIVE: CASE EVENT DATE: 20160801
